FAERS Safety Report 5763686-5 (Version None)
Quarter: 2008Q2

REPORT INFORMATION
  Report Type: 
  Country: None (occurrence: None)
  Receive Date: 20080610
  Receipt Date: 20080308
  Transmission Date: 20081010
  Serious: Yes (Other)
  Sender: FDA-Public Use
  Company Number: FR-BAYER-200819843GPV

PATIENT
  Age: 39 Year
  Sex: Male

DRUGS (3)
  1. LEUKINE [Suspect]
     Indication: ALVEOLAR PROTEINOSIS
     Dosage: AS USED: 5 ?G/KG
  2. LEUKINE [Suspect]
     Dosage: AS USED: 15 ?G/KG
  3. CORTICOIDS [Concomitant]
     Indication: PULMONARY FIBROSIS

REACTIONS (4)
  - AGITATION [None]
  - CONFUSIONAL STATE [None]
  - HALLUCINATION [None]
  - TREMOR [None]
